FAERS Safety Report 25038708 (Version 2)
Quarter: 2025Q1

REPORT INFORMATION
  Report Type: Spontaneous
  Country: CN (occurrence: CN)
  Receive Date: 20250304
  Receipt Date: 20250328
  Transmission Date: 20250409
  Serious: No
  Sender: TAKEDA
  Company Number: CN-HUTCHMED LIMITED-HMP2025CN00494

PATIENT
  Age: 61 Year
  Sex: Male
  Weight: 63.4 kg

DRUGS (5)
  1. FRUQUINTINIB [Suspect]
     Active Substance: FRUQUINTINIB
     Indication: Rectal cancer
     Dosage: 5 MILLIGRAM, QD
     Dates: start: 20241205, end: 20241225
  2. FRUQUINTINIB [Suspect]
     Active Substance: FRUQUINTINIB
     Dosage: 5 MILLIGRAM, QD
     Dates: start: 20241231, end: 20250120
  3. ESOMEPRAZOLE [Concomitant]
     Active Substance: ESOMEPRAZOLE
     Indication: Insomnia
  4. Compound polymyxin b [Concomitant]
     Indication: Palmar-plantar erythrodysaesthesia syndrome
  5. IBUPROFEN [Concomitant]
     Active Substance: IBUPROFEN
     Indication: Back pain
     Dosage: 1 DOSAGE FORM, QD
     Dates: start: 20250125

REACTIONS (1)
  - Transaminases increased [Unknown]

NARRATIVE: CASE EVENT DATE: 20250126
